FAERS Safety Report 20218112 (Version 1)
Quarter: 2021Q4

REPORT INFORMATION
  Report Type: Spontaneous
  Country: US (occurrence: US)
  Receive Date: 20211222
  Receipt Date: 20211222
  Transmission Date: 20220303
  Serious: No
  Sender: FDA-Public Use
  Company Number: US-SA-SAC20211221000655

PATIENT
  Age: 53 Year
  Sex: Female

DRUGS (4)
  1. AUBAGIO [Suspect]
     Active Substance: TERIFLUNOMIDE
     Indication: Multiple sclerosis
     Dosage: 1 DF, QD
     Route: 048
     Dates: start: 2021, end: 20210812
  2. MIRTAZAPINE [Concomitant]
     Active Substance: MIRTAZAPINE
  3. OLANZAPINE [Concomitant]
     Active Substance: OLANZAPINE
  4. OSPHENA [Concomitant]
     Active Substance: OSPEMIFENE

REACTIONS (1)
  - Product dose omission issue [Unknown]
